FAERS Safety Report 14955700 (Version 1)
Quarter: 2018Q2

REPORT INFORMATION
  Report Type: Spontaneous
  Country: ES (occurrence: ES)
  Receive Date: 20180531
  Receipt Date: 20180531
  Transmission Date: 20180711
  Serious: Yes (Hospitalization, Other)
  Sender: FDA-Public Use
  Company Number: ES-BRISTOL-MYERS SQUIBB COMPANY-BMS-2018-046876

PATIENT
  Age: 77 Year
  Sex: Female
  Weight: 65 kg

DRUGS (4)
  1. ALGIDOL                            /00109201/ [Concomitant]
     Indication: UPPER RESPIRATORY TRACT INFECTION
     Dosage: 1 DF, PER DAY
     Route: 048
     Dates: start: 20180219
  2. HYDREA [Suspect]
     Active Substance: HYDROXYUREA
     Indication: CHRONIC MYELOMONOCYTIC LEUKAEMIA
     Dosage: 500 MG, PER DAY
     Route: 048
     Dates: start: 20170620
  3. ARANESP [Suspect]
     Active Substance: DARBEPOETIN ALFA
     Indication: ANAEMIA
     Dosage: 300 ?G, PER DAY
     Route: 058
     Dates: start: 20171214, end: 20180125
  4. EPOETIN ALFA [Suspect]
     Active Substance: ERYTHROPOIETIN
     Indication: CHRONIC MYELOMONOCYTIC LEUKAEMIA
     Dosage: 1 MG, PER DAY
     Route: 058
     Dates: start: 20180125, end: 20180226

REACTIONS (1)
  - Aplasia pure red cell [Recovering/Resolving]

NARRATIVE: CASE EVENT DATE: 20180226
